FAERS Safety Report 8432729 (Version 2)
Quarter: 2012Q4

REPORT INFORMATION
  Report Type: 
  Country: US (occurrence: US)
  Receive Date: 20120229
  Receipt Date: 20121011
  Transmission Date: 20130627
  Serious: Yes (Hospitalization, Other)
  Sender: FDA-Public Use
  Company Number: US-US-EMD SERONO, INC.-7114758

PATIENT
  Age: 55 Year
  Sex: Female
  Weight: 68 kg

DRUGS (12)
  1. REBIF [Suspect]
     Indication: MULTIPLE SCLEROSIS
     Route: 058
     Dates: start: 20090303
  2. CELEBREX [Concomitant]
     Indication: HEADACHE
     Route: 048
     Dates: start: 201107
  3. METOPROLOL [Concomitant]
     Indication: HYPERTENSION
     Dosage: at night
     Route: 048
  4. METOPROLOL [Concomitant]
     Indication: TRANSIENT ISCHAEMIC ATTACK
  5. METOPROLOL [Concomitant]
     Indication: CEREBROVASCULAR ACCIDENT
  6. ASPIRIN [Concomitant]
     Indication: TRANSIENT ISCHAEMIC ATTACK
     Route: 048
  7. ASPIRIN [Concomitant]
     Indication: CEREBROVASCULAR ACCIDENT
  8. FLUOXETINE HYDROCHLORIDE [Concomitant]
     Indication: DEPRESSION
     Route: 048
  9. ZANAFLEX [Concomitant]
     Indication: MULTIPLE SCLEROSIS
     Route: 048
     Dates: start: 20090323
  10. VYTORIN [Concomitant]
     Indication: HYPERLIPIDAEMIA
     Dosage: 10/40
     Route: 048
  11. AMPYRA [Concomitant]
     Indication: MULTIPLE SCLEROSIS
     Route: 048
     Dates: start: 20120917
  12. RITALIN [Concomitant]
     Indication: FATIGUE
     Dosage: 10 mg in the morning and 5 mg in the evening

REACTIONS (3)
  - Intracranial aneurysm [Recovering/Resolving]
  - Cerebral infarction [Recovering/Resolving]
  - Injection site bruising [Not Recovered/Not Resolved]
